FAERS Safety Report 6575969-X (Version None)
Quarter: 2010Q1

REPORT INFORMATION
  Report Type: 
  Country: None (occurrence: None)
  Receive Date: 20100209
  Receipt Date: 20100125
  Transmission Date: 20100710
  Serious: No
  Sender: FDA-Public Use
  Company Number: US-ROXANE LABORATORIES, INC.-2010-RO-00117RO

PATIENT
  Sex: Female

DRUGS (1)
  1. DIGOXIN [Suspect]

REACTIONS (5)
  - BURNING SENSATION [None]
  - DYSPHONIA [None]
  - OEDEMA PERIPHERAL [None]
  - PHARYNGITIS [None]
  - SINUSITIS [None]
